FAERS Safety Report 7730915-8 (Version None)
Quarter: 2011Q3

REPORT INFORMATION
  Report Type: 
  Country: None (occurrence: None)
  Receive Date: 20110906
  Receipt Date: 20110831
  Transmission Date: 20111222
  Serious: Yes (Other)
  Sender: FDA-Public Use
  Company Number: US-PFIZER INC-2011183702

PATIENT
  Sex: Male
  Weight: 102.4 kg

DRUGS (6)
  1. ACCUPRIL [Concomitant]
     Indication: HYPERTENSION
     Dosage: 40 MG, 2X/DAY
  2. JANUVIA [Concomitant]
     Indication: TYPE 2 DIABETES MELLITUS
     Dosage: 100 MG, 1X/DAY
  3. CRESTOR [Concomitant]
     Indication: BLOOD TRIGLYCERIDES INCREASED
     Dosage: 20 MG, 1X/DAY
  4. HYDROCHLOROTHIAZIDE [Concomitant]
     Indication: HYPERTENSION
     Dosage: 25 MG, 1X/DAY
  5. NORVASC [Concomitant]
     Indication: HYPERTENSION
     Dosage: 5 MG, 2X/DAY
  6. SUTENT [Suspect]
     Indication: METASTATIC RENAL CELL CARCINOMA
     Dosage: 50 MG, DAILY, CYCLE 4 WEEKS ON, 2 OFF
     Route: 048
     Dates: start: 20110723

REACTIONS (5)
  - PALMAR-PLANTAR ERYTHRODYSAESTHESIA SYNDROME [None]
  - HYPERTENSION [None]
  - EJECTION FRACTION DECREASED [None]
  - RENAL IMPAIRMENT [None]
  - HYPOCHOLESTEROLAEMIA [None]
